FAERS Safety Report 6258352-6 (Version None)
Quarter: 2009Q3

REPORT INFORMATION
  Report Type: 
  Country: None (occurrence: None)
  Receive Date: 20090707
  Receipt Date: 20090625
  Transmission Date: 20100115
  Serious: No
  Sender: FDA-Public Use
  Company Number: CA-ELI_LILLY_AND_COMPANY-CA200906006326

PATIENT
  Age: 51 Year
  Sex: Male

DRUGS (5)
  1. CYMBALTA [Suspect]
     Indication: PANIC DISORDER
     Dosage: 30 MG, UNK
     Dates: start: 20080101, end: 20090618
  2. CYMBALTA [Suspect]
     Dosage: 60 MG, UNK
     Dates: start: 20090619
  3. ANTIHISTAMINES [Concomitant]
     Indication: HYPERSENSITIVITY
     Dosage: UNK, AS NEEDED
  4. MAXALT [Concomitant]
     Indication: MIGRAINE
     Dosage: UNK, AS NEEDED
  5. ANTIINFLAMMATORY/ANTIRHEUMATIC NON-STEROIDS [Concomitant]
     Dosage: UNK, AS NEEDED

REACTIONS (11)
  - ANXIETY [None]
  - EAR CONGESTION [None]
  - EAR DISCOMFORT [None]
  - HEARING IMPAIRED [None]
  - INSOMNIA [None]
  - NASAL CONGESTION [None]
  - NASOPHARYNGITIS [None]
  - OFF LABEL USE [None]
  - SINUS CONGESTION [None]
  - URINE COLOUR ABNORMAL [None]
  - URINE ODOUR ABNORMAL [None]
